FAERS Safety Report 12983476 (Version 1)
Quarter: 2016Q4

REPORT INFORMATION
  Report Type: Spontaneous
  Country: SI (occurrence: SI)
  Receive Date: 20161129
  Receipt Date: 20161129
  Transmission Date: 20170207
  Serious: Yes (Other)
  Sender: FDA-Public Use
  Company Number: SI-MEDA-2016110049

PATIENT
  Age: 57 Year
  Sex: Female

DRUGS (4)
  1. DYMISTA [Suspect]
     Active Substance: AZELASTINE HYDROCHLORIDE\FLUTICASONE PROPIONATE
     Indication: RHINITIS ALLERGIC
     Dates: start: 20160317, end: 20160611
  2. LEKADOL 500 MG [Concomitant]
     Route: 048
  3. NOLPAZA 20 MG [Concomitant]
     Dosage: IN THE MORNING
     Route: 048
  4. ARCOXIA 60 MG [Concomitant]
     Route: 048
     Dates: start: 20160711

REACTIONS (3)
  - Dizziness [Recovered/Resolved]
  - Myopia [Not Recovered/Not Resolved]
  - Somnolence [Recovered/Resolved]

NARRATIVE: CASE EVENT DATE: 20160317
